FAERS Safety Report 10063237 (Version 3)
Quarter: 2014Q3

REPORT INFORMATION
  Report Type: Spontaneous
  Country: IT (occurrence: IT)
  Receive Date: 20140407
  Receipt Date: 20140911
  Transmission Date: 20150326
  Serious: Yes (Other)
  Sender: FDA-Public Use
  Company Number: IT-ELI_LILLY_AND_COMPANY-IT201403010165

PATIENT
  Age: 10 Year
  Sex: Male

DRUGS (6)
  1. STRATTERA [Suspect]
     Active Substance: ATOMOXETINE HYDROCHLORIDE
     Dosage: 25 MG, QD
     Route: 048
     Dates: start: 200811, end: 20090101
  2. DEPAKIN [Concomitant]
     Active Substance: VALPROATE SODIUM
     Dosage: 600 MG, UNKNOWN
     Route: 065
  3. STRATTERA [Suspect]
     Active Substance: ATOMOXETINE HYDROCHLORIDE
     Dosage: 40 MG, QD
     Route: 048
     Dates: start: 20090101, end: 20090301
  4. DEPAKIN [Concomitant]
     Active Substance: VALPROATE SODIUM
     Dosage: 400 MG, QD
     Route: 065
     Dates: start: 200810
  5. STRATTERA [Suspect]
     Active Substance: ATOMOXETINE HYDROCHLORIDE
     Indication: ATTENTION DEFICIT/HYPERACTIVITY DISORDER
     Dosage: 18 MG, QD
     Route: 048
     Dates: start: 200810, end: 200811
  6. STRATTERA [Suspect]
     Active Substance: ATOMOXETINE HYDROCHLORIDE
     Dosage: 25 MG, QD
     Route: 048

REACTIONS (1)
  - Self injurious behaviour [Recovered/Resolved]

NARRATIVE: CASE EVENT DATE: 20090301
